FAERS Safety Report 14999116 (Version 1)
Quarter: 2018Q3

REPORT INFORMATION
  Report Type: Spontaneous
  Country: US (occurrence: US)
  Receive Date: 20180612
  Receipt Date: 20180612
  Transmission Date: 20181010
  Serious: No
  Sender: FDA-Public Use
  Company Number: US-IPCA LABORATORIES LIMITED-IPC-2017-US-002805

PATIENT

DRUGS (2)
  1. PROPRANOLOL HYDROCHLORIDE 80 MG TABLETS, USP [Suspect]
     Active Substance: PROPRANOLOL HYDROCHLORIDE
     Indication: TREMOR
     Dosage: 80 MG, BID
     Route: 048
  2. TIMOLOL. [Concomitant]
     Active Substance: TIMOLOL

REACTIONS (6)
  - Tremor [Recovering/Resolving]
  - Drug ineffective [Unknown]
  - Product substitution issue [None]
  - Product solubility abnormal [None]
  - Blood pressure fluctuation [Recovering/Resolving]
  - Product physical issue [Recovering/Resolving]
